FAERS Safety Report 17075761 (Version 1)
Quarter: 2019Q4

REPORT INFORMATION
  Report Type: Other
  Country: ZA (occurrence: ZA)
  Receive Date: 20191126
  Receipt Date: 20191126
  Transmission Date: 20200122
  Serious: Yes (Death)
  Sender: FDA-Public Use
  Company Number: ZA-ALSI-201900485

PATIENT
  Sex: Female
  Weight: 2.84 kg

DRUGS (3)
  1. OXYGEN. [Suspect]
     Active Substance: OXYGEN
     Indication: NEONATAL RESPIRATORY DISTRESS
     Route: 055
  2. PENICILLIN G HYDRABAMINE [Concomitant]
  3. GENTAMICIN. [Concomitant]
     Active Substance: GENTAMICIN

REACTIONS (2)
  - Condition aggravated [Fatal]
  - Drug ineffective [Fatal]
